FAERS Safety Report 23593858 (Version 2)
Quarter: 2024Q2

REPORT INFORMATION
  Report Type: Spontaneous
  Country: JP (occurrence: JP)
  Receive Date: 20240305
  Receipt Date: 20240401
  Transmission Date: 20240716
  Serious: Yes (Hospitalization, Other)
  Sender: FDA-Public Use
  Company Number: JP-TAKEDA-2024TJP003014

PATIENT
  Age: 72 Year
  Sex: Male
  Weight: 83 kg

DRUGS (5)
  1. VECTIBIX [Suspect]
     Active Substance: PANITUMUMAB
     Indication: Colorectal cancer
     Dosage: 460 MILLIGRAM, Q2WEEKS
     Route: 041
     Dates: start: 20230721, end: 20231013
  2. AVASTIN [Suspect]
     Active Substance: BEVACIZUMAB
     Indication: Colon cancer
     Dosage: 500 MILLIGRAM
     Route: 042
     Dates: start: 20220913, end: 20230623
  3. IRINOTECAN [Suspect]
     Active Substance: IRINOTECAN
     Indication: Colon cancer
     Dosage: 240 MILLIGRAM
     Route: 042
     Dates: start: 20230721
  4. IRINOTECAN [Suspect]
     Active Substance: IRINOTECAN
     Dosage: 180 MILLIGRAM
     Route: 042
     Dates: end: 20231013
  5. IRINOTECAN [Suspect]
     Active Substance: IRINOTECAN
     Dosage: 180 MILLIGRAM, Q3WEEKS
     Route: 042
     Dates: start: 20231208

REACTIONS (4)
  - Nephrotic syndrome [Recovered/Resolved]
  - Diarrhoea [Unknown]
  - Diabetes mellitus [Unknown]
  - Herpes zoster [Unknown]

NARRATIVE: CASE EVENT DATE: 20231028
